FAERS Safety Report 8363282-X (Version None)
Quarter: 2012Q2

REPORT INFORMATION
  Report Type: 
  Country: None (occurrence: None)
  Receive Date: 20120516
  Receipt Date: 20110404
  Transmission Date: 20120825
  Serious: No
  Sender: FDA-Public Use
  Company Number: US-GLAXOSMITHKLINE-A0921300A

PATIENT
  Age: 74 Year
  Sex: Female

DRUGS (5)
  1. ADVAIR DISKUS 100/50 [Concomitant]
  2. BACTROBAN [Suspect]
     Indication: NAIL INFECTION
     Dosage: 1APP THREE TIMES PER DAY
     Route: 061
     Dates: start: 20110331, end: 20110403
  3. SYNTHROID [Concomitant]
  4. ALENDRONATE SODIUM [Concomitant]
  5. CIPROFLOXACIN HCL [Concomitant]

REACTIONS (3)
  - PAIN IN EXTREMITY [None]
  - BURNING SENSATION [None]
  - DRUG INEFFECTIVE [None]
